FAERS Safety Report 6241046-0 (Version None)
Quarter: 2009Q2

REPORT INFORMATION
  Report Type: 
  Country: None (occurrence: None)
  Receive Date: 20090619
  Receipt Date: 20090619
  Transmission Date: 20091009
  Serious: No
  Sender: FDA-Public Use
  Company Number: None

PATIENT
  Age: 36 Year
  Sex: Female
  Weight: 82 kg

DRUGS (1)
  1. BUPIVACAINE [Suspect]
     Indication: CAESAREAN SECTION
     Dosage: 1.8 M INTRATHECAL
     Route: 037
     Dates: start: 20090517

REACTIONS (3)
  - DRUG INEFFECTIVE [None]
  - MATERNAL DRUGS AFFECTING FOETUS [None]
  - PRODUCT SUBSTITUTION ISSUE [None]
